FAERS Safety Report 4368074-4 (Version None)
Quarter: 2004Q2

REPORT INFORMATION
  Report Type: 
  Country: None (occurrence: None)
  Receive Date: 20040602
  Receipt Date: 20040511
  Transmission Date: 20050107
  Serious: Yes (Life-Threatening, Other)
  Sender: FDA-Public Use
  Company Number: 200411886FR

PATIENT
  Age: 79 Year
  Sex: Male

DRUGS (10)
  1. LANTUS [Suspect]
     Indication: DIABETES MELLITUS NON-INSULIN-DEPENDENT
     Route: 058
     Dates: start: 20040401
  2. LASILIX [Concomitant]
     Indication: CARDIAC FAILURE
     Route: 048
     Dates: start: 20040401, end: 20040501
  3. RAPID ACTING INSULIN [Concomitant]
     Indication: DIABETES MELLITUS NON-INSULIN-DEPENDENT
     Route: 058
     Dates: start: 20040401
  4. COZAAR [Concomitant]
     Indication: CARDIAC FAILURE
     Route: 048
  5. HEMIDIGOXINE [Concomitant]
     Indication: CARDIAC FAILURE
  6. PREVISCAN [Concomitant]
     Indication: CARDIAC FAILURE
     Route: 048
  7. CORVASAL [Concomitant]
     Indication: CORONARY ARTERY INSUFFICIENCY
     Route: 048
  8. CORVASAL [Concomitant]
     Indication: CORONARY ARTERY SURGERY
     Route: 048
  9. PRAXILENE [Concomitant]
     Indication: ARTERITIS
     Route: 048
  10. LIPANTHYL ^THISSEN^ [Concomitant]
     Indication: HYPERCHOLESTEROLAEMIA
     Route: 048

REACTIONS (9)
  - BLOOD GLUCOSE INCREASED [None]
  - CARDIAC FAILURE [None]
  - FLUID RETENTION [None]
  - GLYCOSYLATED HAEMOGLOBIN INCREASED [None]
  - HYPERKALAEMIA [None]
  - OEDEMA PERIPHERAL [None]
  - PHLEBITIS [None]
  - SODIUM RETENTION [None]
  - WEIGHT INCREASED [None]
